FAERS Safety Report 7370693-8 (Version None)
Quarter: 2011Q1

REPORT INFORMATION
  Report Type: 
  Country: None (occurrence: None)
  Receive Date: 20110323
  Receipt Date: 20110302
  Transmission Date: 20110831
  Serious: Yes (Hospitalization)
  Sender: FDA-Public Use
  Company Number: IT-BAYER-2011-019701

PATIENT
  Sex: Male

DRUGS (4)
  1. VITAMIN A W/VITAMIN D/VITAMIN E/VITAMIN K/ [Concomitant]
  2. CRESTOR [Concomitant]
     Dosage: 1 DF, UNK
  3. ASPIRIN [Suspect]
     Indication: MYOCARDIAL ISCHAEMIA
     Dosage: 100 MG, QD
     Route: 048
     Dates: start: 20080201, end: 20110213
  4. CARDICOR [Concomitant]
     Dosage: 1 DF, UNK

REACTIONS (5)
  - MELAENA [None]
  - UPPER GASTROINTESTINAL HAEMORRHAGE [None]
  - ABDOMINAL PAIN UPPER [None]
  - DUODENAL ULCER [None]
  - HAEMATEMESIS [None]
